FAERS Safety Report 10195569 (Version 1)
Quarter: 2014Q2

REPORT INFORMATION
  Report Type: Spontaneous
  Country: IT (occurrence: IT)
  Receive Date: 20140527
  Receipt Date: 20140527
  Transmission Date: 20141212
  Serious: Yes (Other)
  Sender: FDA-Public Use
  Company Number: PHHY2014IT062134

PATIENT
  Age: 27 Year
  Sex: Female

DRUGS (1)
  1. OXACILLIN [Suspect]

REACTIONS (4)
  - Histiocytosis haematophagic [Recovered/Resolved]
  - Arthritis [Recovered/Resolved]
  - Rash maculo-papular [Recovered/Resolved]
  - Pancytopenia [Recovered/Resolved]
